FAERS Safety Report 17064060 (Version 1)
Quarter: 2019Q4

REPORT INFORMATION
  Report Type: Spontaneous
  Country: US (occurrence: US)
  Receive Date: 20191122
  Receipt Date: 20191122
  Transmission Date: 20200122
  Serious: Yes (Hospitalization)
  Sender: FDA-Public Use
  Company Number: US-PFIZER INC-2019501690

PATIENT
  Age: 86 Year
  Sex: Female

DRUGS (1)
  1. GABAPENTIN. [Suspect]
     Active Substance: GABAPENTIN
     Indication: SEIZURE
     Dosage: 800 MG, 3X/DAY
     Route: 048
     Dates: start: 201205

REACTIONS (6)
  - Fall [Unknown]
  - Drug ineffective [Unknown]
  - Intentional product misuse [Unknown]
  - Ankle fracture [Unknown]
  - Head discomfort [Unknown]
  - Malaise [Unknown]

NARRATIVE: CASE EVENT DATE: 201705
